FAERS Safety Report 20635173 (Version 1)
Quarter: 2022Q1

REPORT INFORMATION
  Report Type: Spontaneous
  Country: CA (occurrence: CA)
  Receive Date: 20220325
  Receipt Date: 20220325
  Transmission Date: 20220423
  Serious: Yes (Other)
  Sender: FDA-Public Use
  Company Number: CA-BAXTER-2022BAX006343

PATIENT
  Sex: Male

DRUGS (5)
  1. CYCLOPHOSPHAMIDE [Suspect]
     Active Substance: CYCLOPHOSPHAMIDE
     Indication: Product used for unknown indication
     Dosage: DOSAGE FORM: NOT REPORTED.
     Route: 042
  2. HUMAN IMMUNOGLOBULIN G [Suspect]
     Active Substance: HUMAN IMMUNOGLOBULIN G
     Indication: Product used for unknown indication
     Dosage: I.V, DOSAGE FORM: NOT REPORTED.
     Route: 042
  3. MYCOPHENOLATE MOFETIL [Suspect]
     Active Substance: MYCOPHENOLATE MOFETIL
     Indication: Product used for unknown indication
     Dosage: DOSAGE FORM: NOT SPECIFIED
     Route: 065
  4. RITUXIMAB [Suspect]
     Active Substance: RITUXIMAB
     Indication: Product used for unknown indication
     Dosage: DOSAGE FORM: NOT REPORTED.
     Route: 065
  5. TACROLIMUS [Suspect]
     Active Substance: TACROLIMUS
     Indication: Product used for unknown indication
     Dosage: DOSAGE FORM: CAPSULES
     Route: 065

REACTIONS (9)
  - Antisynthetase syndrome [Not Recovered/Not Resolved]
  - Depression [Not Recovered/Not Resolved]
  - Myositis [Not Recovered/Not Resolved]
  - Arthralgia [Not Recovered/Not Resolved]
  - Asthenia [Not Recovered/Not Resolved]
  - Fatigue [Not Recovered/Not Resolved]
  - Interstitial lung disease [Not Recovered/Not Resolved]
  - Muscle spasms [Not Recovered/Not Resolved]
  - Myalgia [Not Recovered/Not Resolved]
